FAERS Safety Report 7736892-8 (Version None)
Quarter: 2011Q3

REPORT INFORMATION
  Report Type: 
  Country: None (occurrence: None)
  Receive Date: 20110908
  Receipt Date: 20110831
  Transmission Date: 20111222
  Serious: Yes (Death)
  Sender: FDA-Public Use
  Company Number: PHEH2011US03441

PATIENT
  Sex: Male

DRUGS (10)
  1. VITAMIN B COMPLEX CAP [Concomitant]
  2. GLEEVEC [Suspect]
     Indication: LUNG NEOPLASM MALIGNANT
     Dosage: 400 MG, UNK
     Route: 048
     Dates: start: 20100316
  3. FOSAMAX [Concomitant]
  4. PROSCAR [Concomitant]
  5. FELODIPINE [Concomitant]
  6. CALCIUM CARBONATE [Concomitant]
  7. VITAMIN E [Concomitant]
  8. LOVENOX [Concomitant]
  9. DYAZIDE [Concomitant]
  10. M.V.I. [Concomitant]

REACTIONS (1)
  - DEATH [None]
